FAERS Safety Report 8283953-3 (Version None)
Quarter: 2012Q2

REPORT INFORMATION
  Report Type: 
  Country: None (occurrence: None)
  Receive Date: 20120413
  Receipt Date: 20120402
  Transmission Date: 20120825
  Serious: Yes (Hospitalization, Disabling, Other)
  Sender: FDA-Public Use
  Company Number: US-MYLANLABS-2012S1007399

PATIENT
  Sex: Female
  Weight: 59.88 kg

DRUGS (38)
  1. SPIRONOLACTONE [Concomitant]
  2. LOVENOX [Concomitant]
  3. ISOSORBIDE DINITRATE [Concomitant]
  4. CHLOR [Concomitant]
  5. DILAUDID [Concomitant]
  6. LISINOPRIL [Concomitant]
  7. ERYTHROMYCIN [Concomitant]
     Dosage: FOR 10 DAYS
  8. IMDUR [Concomitant]
  9. MORPHINE [Concomitant]
  10. TOPROL-XL [Concomitant]
  11. PLAVIX [Concomitant]
  12. CORICIDIN HBP MAXIMUM STRENGTH FLU [Concomitant]
  13. NORVASC [Concomitant]
  14. BACTROBAN [Concomitant]
  15. NITROGLYCERIN [Concomitant]
  16. COUMADIN [Concomitant]
  17. TYLENOL (CAPLET) [Concomitant]
  18. IMDUR [Concomitant]
  19. LASIX [Concomitant]
  20. PLAVIX [Concomitant]
  21. MUCINEX [Concomitant]
  22. INTEGRILIN [Concomitant]
  23. ISOSORBIDE DINITRATE [Concomitant]
  24. COREG [Concomitant]
  25. DIGOXIN [Suspect]
     Route: 048
     Dates: start: 20060109, end: 20080724
  26. LOPRESSOR [Concomitant]
  27. ALBUTEROL [Concomitant]
  28. LIPITOR [Concomitant]
  29. NITROGLYCERIN [Concomitant]
     Indication: CHEST PAIN
     Route: 060
  30. CHANTIX [Concomitant]
     Dosage: FOR 12 WEEKS
  31. KEFLEX [Concomitant]
  32. LIPITOR [Concomitant]
  33. ASPIRIN [Concomitant]
  34. VIOXX [Concomitant]
  35. FLEXERIL [Concomitant]
  36. NASONEX [Concomitant]
  37. AVELOX [Concomitant]
  38. SIMVASTATIN [Concomitant]

REACTIONS (106)
  - DISEASE PROGRESSION [None]
  - RENAL FAILURE [None]
  - ADVERSE DRUG REACTION [None]
  - ANGIOGRAM ABNORMAL [None]
  - BIOPSY CARTILAGE ABNORMAL [None]
  - CLUBBING [None]
  - CONDITION AGGRAVATED [None]
  - COUGH [None]
  - ECHOCARDIOGRAM ABNORMAL [None]
  - EMOTIONAL DISTRESS [None]
  - HAEMATURIA [None]
  - INTERMITTENT CLAUDICATION [None]
  - JOINT RANGE OF MOTION DECREASED [None]
  - NASAL CONGESTION [None]
  - OEDEMA PERIPHERAL [None]
  - INSOMNIA [None]
  - BACK PAIN [None]
  - BLOOD CREATINE PHOSPHOKINASE INCREASED [None]
  - CHEST DISCOMFORT [None]
  - CORONARY ARTERY RESTENOSIS [None]
  - CRYING [None]
  - CYANOSIS [None]
  - FATIGUE [None]
  - HEART RATE DECREASED [None]
  - NECK PAIN [None]
  - PARAESTHESIA [None]
  - PERIPHERAL VASCULAR DISORDER [None]
  - TOBACCO USER [None]
  - TOBACCO ABUSE [None]
  - ULTRASOUND KIDNEY ABNORMAL [None]
  - CHEST PAIN [None]
  - ACUTE MYOCARDIAL INFARCTION [None]
  - CELLULITIS [None]
  - DIZZINESS [None]
  - FISTULA [None]
  - HEADACHE [None]
  - HYPERLIPIDAEMIA [None]
  - HYPERTENSION [None]
  - UPPER-AIRWAY COUGH SYNDROME [None]
  - ROAD TRAFFIC ACCIDENT [None]
  - SKIN LESION [None]
  - TENDERNESS [None]
  - TROPONIN INCREASED [None]
  - ANGINA UNSTABLE [None]
  - CARDIAC FAILURE CONGESTIVE [None]
  - ANXIETY [None]
  - AORTOGRAM ABNORMAL [None]
  - ASTHENIA [None]
  - BLOOD CREATINE PHOSPHOKINASE MB INCREASED [None]
  - BLOOD UREA INCREASED [None]
  - DEPRESSION [None]
  - GASTROOESOPHAGEAL REFLUX DISEASE [None]
  - HYPERHIDROSIS [None]
  - HYPERKALAEMIA [None]
  - HYPERPARATHYROIDISM [None]
  - NICOTINE DEPENDENCE [None]
  - RENAL ARTERY STENOSIS [None]
  - VITAMIN D DEFICIENCY [None]
  - ATRIAL FIBRILLATION [None]
  - AORTIC ANEURYSM [None]
  - COMPUTERISED TOMOGRAM ABDOMEN ABNORMAL [None]
  - DRUG ADMINISTRATION ERROR [None]
  - FAMILY STRESS [None]
  - FEELING COLD [None]
  - MUSCLE SPASMS [None]
  - MUSCULOSKELETAL PAIN [None]
  - NECK INJURY [None]
  - PALPITATIONS [None]
  - PRODUCTIVE COUGH [None]
  - TOOTHACHE [None]
  - VASCULAR BYPASS DYSFUNCTION [None]
  - CORONARY ARTERY DISEASE [None]
  - MYOCARDIAL ISCHAEMIA [None]
  - RENAL FAILURE CHRONIC [None]
  - ABDOMINAL MASS [None]
  - BLOOD CREATININE INCREASED [None]
  - BRONCHITIS [None]
  - CHEST X-RAY ABNORMAL [None]
  - CHILLS [None]
  - DYSLIPIDAEMIA [None]
  - DYSPNOEA [None]
  - DYSPNOEA EXERTIONAL [None]
  - ECONOMIC PROBLEM [None]
  - ELECTROCARDIOGRAM ABNORMAL [None]
  - HYPOTENSION [None]
  - NAUSEA [None]
  - NIGHTMARE [None]
  - OROPHARYNGEAL PAIN [None]
  - REFUSAL OF TREATMENT BY PATIENT [None]
  - SLEEP DISORDER [None]
  - BASAL CELL CARCINOMA [None]
  - SNEEZING [None]
  - STENT PLACEMENT [None]
  - UPPER RESPIRATORY TRACT INFECTION [None]
  - WEIGHT DECREASED [None]
  - WHITE BLOOD CELL COUNT INCREASED [None]
  - PHYSICAL DISABILITY [None]
  - DISEASE RECURRENCE [None]
  - BRADYCARDIA [None]
  - CARDIOVASCULAR DISORDER [None]
  - CORONARY ARTERY STENOSIS [None]
  - DRUG INEFFECTIVE [None]
  - MEDICAL DIET [None]
  - OSTEOARTHRITIS [None]
  - SOMNOLENCE [None]
  - SPINAL X-RAY ABNORMAL [None]
